FAERS Safety Report 5042798-8 (Version None)
Quarter: 2006Q3

REPORT INFORMATION
  Report Type: 
  Country: None (occurrence: None)
  Receive Date: 20060705
  Receipt Date: 20010206
  Transmission Date: 20061208
  Serious: Yes (Other)
  Sender: FDA-Public Use
  Company Number: GB-ROCHE-254233

PATIENT
  Age: 44 Year
  Sex: Male

DRUGS (10)
  1. MYCOPHENOLATE MOFETIL [Suspect]
     Route: 042
  2. MYCOPHENOLATE MOFETIL [Suspect]
     Route: 042
  3. RABBIT ANTITHYMOCYTE GLOBULIN [Concomitant]
  4. CYCLOSPORINE [Concomitant]
  5. PREDNISOLONE [Concomitant]
  6. CO-TRIMOXAZOLE [Concomitant]
  7. ACYCLOVIR [Concomitant]
  8. NYSTATIN [Concomitant]
  9. ASPIRIN [Concomitant]
  10. METHYLPREDNISOLONE [Concomitant]
     Route: 042

REACTIONS (6)
  - ANAEMIA [None]
  - BLOOD ALBUMIN INCREASED [None]
  - BONE MARROW FAILURE [None]
  - DRUG TOXICITY [None]
  - IMMUNOSUPPRESSANT DRUG LEVEL INCREASED [None]
  - NEUTROPHIL MORPHOLOGY ABNORMAL [None]
